FAERS Safety Report 13830493 (Version 1)
Quarter: 2017Q3

REPORT INFORMATION
  Report Type: Spontaneous
  Country: US (occurrence: US)
  Receive Date: 20170803
  Receipt Date: 20170803
  Transmission Date: 20171127
  Serious: Yes (Other)
  Sender: FDA-Public Use
  Company Number: US-SA-2017SA112616

PATIENT
  Age: 74 Year
  Sex: Female

DRUGS (6)
  1. ALIROCUMAB PREFILLED PEN [Concomitant]
     Active Substance: ALIROCUMAB
     Indication: BLOOD CHOLESTEROL
     Dates: start: 2016, end: 201704
  2. ALIROCUMAB PREFILLED PEN [Concomitant]
     Active Substance: ALIROCUMAB
     Indication: BLOOD CHOLESTEROL
     Dates: start: 201510, end: 2016
  3. ALIROCUMAB PREFILLED PEN [Concomitant]
     Active Substance: ALIROCUMAB
     Indication: BLOOD CHOLESTEROL
     Dates: start: 2017
  4. PRALUENT [Suspect]
     Active Substance: ALIROCUMAB
     Indication: BLOOD CHOLESTEROL
     Route: 058
     Dates: start: 201510, end: 2016
  5. PRALUENT [Suspect]
     Active Substance: ALIROCUMAB
     Indication: BLOOD CHOLESTEROL
     Route: 058
     Dates: start: 2016, end: 201704
  6. PRALUENT [Suspect]
     Active Substance: ALIROCUMAB
     Indication: BLOOD CHOLESTEROL
     Route: 058
     Dates: start: 2017

REACTIONS (10)
  - Blood urine present [Unknown]
  - Feeling abnormal [Unknown]
  - Urinary tract infection [Unknown]
  - Fatigue [Unknown]
  - Malaise [Unknown]
  - Weight decreased [Unknown]
  - Therapeutic response decreased [Unknown]
  - Pyrexia [Unknown]
  - Tremor [Unknown]
  - Vomiting [Unknown]

NARRATIVE: CASE EVENT DATE: 201612
